FAERS Safety Report 10409475 (Version 1)
Quarter: 2014Q2

REPORT INFORMATION
  Report Type: Spontaneous
  Country: US (occurrence: None)
  Receive Date: 20140530
  Receipt Date: 20140530
  Transmission Date: 20141212
  Serious: No
  Sender: FDA-Public Use
  Company Number: 227211LEO

PATIENT
  Age: 57 Year
  Sex: Female

DRUGS (2)
  1. PICATO (INGENOL MEBUTATE) (0.015 %, GEL) [Suspect]
     Indication: ACTINIC KERATOSIS
     Route: 061
     Dates: start: 20140419, end: 20140419
  2. NAPROSYN (NAPROXEN) [Concomitant]

REACTIONS (7)
  - Vomiting [None]
  - Diarrhoea [None]
  - Asthenia [None]
  - Weight decreased [None]
  - Dehydration [None]
  - Nausea [None]
  - Incorrect drug administration duration [None]
